FAERS Safety Report 12630999 (Version 2)
Quarter: 2016Q3

REPORT INFORMATION
  Report Type: Spontaneous
  Country: US (occurrence: US)
  Receive Date: 20160808
  Receipt Date: 20160808
  Transmission Date: 20161109
  Serious: No
  Sender: FDA-Public Use
  Company Number: US-BEH-2015051803

PATIENT
  Sex: Female
  Weight: 81 kg

DRUGS (32)
  1. HIZENTRA [Suspect]
     Active Substance: HUMAN IMMUNOGLOBULIN G
     Indication: IMMUNODEFICIENCY COMMON VARIABLE
     Dosage: 4 GM 20 ML VIAL
     Route: 058
  2. MEDROXYPROGESTERONE [Concomitant]
     Active Substance: MEDROXYPROGESTERONE
     Dosage: 1 TAB AS DIRECTED
     Route: 048
  3. CRANBERRY. [Concomitant]
     Active Substance: CRANBERRY
     Route: 048
  4. OMEPRAZOLE. [Concomitant]
     Active Substance: OMEPRAZOLE
     Route: 048
  5. MAXALT [Concomitant]
     Active Substance: RIZATRIPTAN BENZOATE
     Route: 048
  6. EPIPEN [Concomitant]
     Active Substance: EPINEPHRINE
     Dosage: AUTO-INJECTOR 1 DOSE AS NEEDED
     Route: 030
  7. DETROL LA [Concomitant]
     Active Substance: TOLTERODINE TARTRATE
     Dosage: 1 CAP EVERY DAY
     Route: 048
  8. BENADRYL [Concomitant]
     Active Substance: DIPHENHYDRAMINE HYDROCHLORIDE
     Dosage: AS NEEDED
     Route: 048
  9. BL VITAMIN A [Concomitant]
     Route: 048
  10. SELENIUM [Concomitant]
     Active Substance: SELENIUM
     Dosage: 1 TAV EVERY DAY
     Route: 048
  11. GINKOBA [Concomitant]
     Active Substance: GINKGO
     Dosage: 1 TAB EVERY DAY
     Route: 048
  12. CENTURY MULTIVITAMIN [Concomitant]
     Route: 048
  13. CYANOCOBALAMIN. [Concomitant]
     Active Substance: CYANOCOBALAMIN
     Dosage: 1000 MCG/ML (1 DOSE IN THE MORNING)
     Route: 030
  14. PREDNISONE. [Concomitant]
     Active Substance: PREDNISONE
     Dosage: 1 DOSE AS DIRECTED
     Route: 048
  15. LEVAQUIN [Concomitant]
     Active Substance: LEVOFLOXACIN
     Route: 048
  16. TRAZODONE [Concomitant]
     Active Substance: TRAZODONE HYDROCHLORIDE
     Dosage: AS DIRECTED
     Route: 048
  17. ESTROGEN -METHYL TESTOST [Concomitant]
     Dosage: 2% MC 1 TAB AS DIRECTED
  18. MECLIZINE [Concomitant]
     Active Substance: MECLIZINE HYDROCHLORIDE
     Route: 048
  19. ADULT ASPIRIN [Concomitant]
     Dosage: 1  TAB EVERY DAY
     Route: 048
  20. LIDOCAINE/PRILOCAINE [Concomitant]
     Active Substance: LIDOCAINE\PRILOCAINE
     Indication: PREMEDICATION
     Dosage: 1 DOSE AS DIRECTED 2.5% PRIOR
     Route: 061
  21. LYRICA [Concomitant]
     Active Substance: PREGABALIN
     Dosage: 1 CAP 3 TIMES A DAY AS NEEDED
  22. OXYCODONE [Concomitant]
     Active Substance: OXYCODONE
     Dosage: 30 MG TAB
     Route: 048
  23. IRON [Concomitant]
     Active Substance: IRON
     Dosage: CAPLET
     Route: 048
  24. LIDOCAINE. [Concomitant]
     Active Substance: LIDOCAINE
     Indication: PREMEDICATION
     Dosage: 4%
     Route: 061
  25. FIRST-TESTOSTERONE [Concomitant]
     Active Substance: TESTOSTERONE
     Dosage: 1 DOSE AS DIRECTED 2%
     Route: 061
  26. DILTIAZEM. [Concomitant]
     Active Substance: DILTIAZEM
     Dosage: 1 CAP EVERY DAY
     Route: 048
  27. OPANA [Concomitant]
     Active Substance: OXYMORPHONE HYDROCHLORIDE
     Route: 048
  28. ACETAMINOPHEN. [Concomitant]
     Active Substance: ACETAMINOPHEN
     Route: 048
  29. DIPHENHYDRAMINE. [Concomitant]
     Active Substance: DIPHENHYDRAMINE
     Route: 048
  30. ZITHROMAX [Concomitant]
     Active Substance: AZITHROMYCIN DIHYDRATE
     Dosage: 250 MG Z-PAK
     Route: 048
  31. SIMVASTATIN. [Concomitant]
     Active Substance: SIMVASTATIN
     Dosage: 1 TAB EVERY DAY
     Route: 048
  32. ACYCLOVIR. [Concomitant]
     Active Substance: ACYCLOVIR
     Dosage: 1 TAB EVERY DAY
     Route: 048

REACTIONS (2)
  - Infusion site warmth [Unknown]
  - Infusion site swelling [Unknown]
